FAERS Safety Report 7276745-5 (Version None)
Quarter: 2011Q1

REPORT INFORMATION
  Report Type: 
  Country: None (occurrence: None)
  Receive Date: 20110204
  Receipt Date: 20110202
  Transmission Date: 20110831
  Serious: Yes (Hospitalization)
  Sender: FDA-Public Use
  Company Number: GB-PFIZER INC-2006055019

PATIENT
  Age: 70 Year
  Sex: Male

DRUGS (9)
  1. DICLOFENAC [Concomitant]
     Route: 048
     Dates: start: 20050718, end: 20060501
  2. AMLODIPINE [Concomitant]
     Route: 048
     Dates: start: 20051216, end: 20060501
  3. BENDROFLUMETHIAZIDE [Concomitant]
     Route: 048
     Dates: start: 20051104, end: 20060501
  4. METFORMIN HCL [Concomitant]
     Route: 048
     Dates: start: 20001016, end: 20060501
  5. CYCLIZINE [Concomitant]
     Route: 048
     Dates: start: 20060324, end: 20060501
  6. TRAMADOL [Concomitant]
     Route: 048
     Dates: start: 20050718, end: 20060501
  7. ESOMEPRAZOLE [Concomitant]
     Route: 048
     Dates: start: 20050803, end: 20060501
  8. SUNITINIB MALATE [Suspect]
     Indication: GASTROINTESTINAL STROMAL TUMOUR
     Dosage: 25 MG, 1X/DAY
     Route: 048
     Dates: start: 20050713, end: 20060426
  9. TEMAZEPAM [Concomitant]
     Route: 048
     Dates: start: 20050816, end: 20060501

REACTIONS (1)
  - PLEURAL EFFUSION [None]
